FAERS Safety Report 7065679-7 (Version None)
Quarter: 2010Q4

REPORT INFORMATION
  Report Type: 
  Country: None (occurrence: None)
  Receive Date: 20101027
  Receipt Date: 20101018
  Transmission Date: 20110411
  Serious: Yes (Other)
  Sender: FDA-Public Use
  Company Number: US-PERRIGO-10US014039

PATIENT
  Sex: Male

DRUGS (1)
  1. DOXYLAMINE SUCCINATE 25 MG 441 [Suspect]
     Indication: INTENTIONAL OVERDOSE
     Dosage: 750 MG (APPROXIMATE) ONCE
     Route: 048
     Dates: start: 20101018, end: 20101018

REACTIONS (1)
  - INTENTIONAL OVERDOSE [None]
